FAERS Safety Report 6219034-X (Version None)
Quarter: 2009Q2

REPORT INFORMATION
  Report Type: 
  Country: None (occurrence: None)
  Receive Date: 20090608
  Receipt Date: 20090528
  Transmission Date: 20091009
  Serious: Yes (Death)
  Sender: FDA-Public Use
  Company Number: JP-ABBOTT-09P-087-0578327-00

PATIENT
  Age: 77 Year
  Sex: Male

DRUGS (11)
  1. LEUPLIN SR FOR INJECTION 11.25 MG [Suspect]
     Indication: PROSTATE CANCER STAGE IV
     Route: 058
     Dates: start: 20051125, end: 20060320
  2. LEUPLIN SR FOR INJECTION 11.25 MG [Suspect]
     Dates: start: 20060417, end: 20080303
  3. CASODEX [Concomitant]
     Indication: PROSTATE CANCER STAGE IV
     Route: 048
     Dates: start: 20060808, end: 20070319
  4. FLUTAMIDE [Concomitant]
     Indication: PROSTATE CANCER STAGE IV
     Route: 048
     Dates: end: 20060807
  5. DIETHYLSTILBESTROL [Concomitant]
     Indication: PROSTATE CANCER STAGE IV
     Route: 048
     Dates: start: 20071013, end: 20071112
  6. DIETHYLSTILBESTROL [Concomitant]
     Route: 042
     Dates: start: 20070922, end: 20071012
  7. ETHINYLESTRADIOL [Concomitant]
     Indication: PROSTATE CANCER STAGE IV
     Route: 048
     Dates: start: 20071112, end: 20080107
  8. TAMSULOSIN HYDROCHLORIDE [Concomitant]
     Indication: DYSURIA
     Route: 048
     Dates: start: 20060515, end: 20060612
  9. ASPIRIN [Concomitant]
     Indication: CEREBRAL INFARCTION
     Route: 048
     Dates: start: 20070926
  10. TSUMURA RIKKUNSHI-TO [Concomitant]
     Indication: VOMITING
     Route: 048
     Dates: start: 20070926, end: 20071112
  11. VESICARE [Concomitant]
     Indication: POLLAKIURIA
     Route: 048
     Dates: start: 20071203

REACTIONS (1)
  - SUBDURAL HAEMATOMA [None]
